FAERS Safety Report 21194144 (Version 5)
Quarter: 2023Q1

REPORT INFORMATION
  Report Type: Other
  Country: JP (occurrence: JP)
  Receive Date: 20220810
  Receipt Date: 20230320
  Transmission Date: 20230418
  Serious: Yes (Life-Threatening, Hospitalization, Other)
  Sender: FDA-Public Use
  Company Number: JP-CHUGAI-2022015278

PATIENT
  Age: 75 Year
  Sex: Male
  Weight: 53.8 kg

DRUGS (5)
  1. ATEZOLIZUMAB [Suspect]
     Active Substance: ATEZOLIZUMAB
     Indication: Non-small cell lung cancer
     Route: 041
     Dates: start: 20210811, end: 20220323
  2. CARBOPLATIN [Suspect]
     Active Substance: CARBOPLATIN
     Indication: Large cell lung cancer
     Dosage: 590 MILLIGRAM?MOST RECENT DOSE RECEIVED ON 13/OCT/2021
     Route: 041
     Dates: start: 20210811
  3. ABRAXANE [Suspect]
     Active Substance: PACLITAXEL
     Indication: Large cell lung cancer
     Dosage: 150 MILLIGRAM?MOST RECENT DOSE RECEIVED ON 27/OCT/2021
     Route: 041
     Dates: start: 20210811
  4. CARBOPLATIN [Concomitant]
     Active Substance: CARBOPLATIN
     Indication: Large cell lung cancer
     Route: 041
     Dates: start: 20210811, end: 20211013
  5. PACLITAXEL [Concomitant]
     Active Substance: PACLITAXEL
     Indication: Large cell lung cancer
     Route: 041
     Dates: start: 20210811, end: 20211027

REACTIONS (6)
  - Adrenal insufficiency [Recovering/Resolving]
  - Acute kidney injury [Recovering/Resolving]
  - Rhabdomyolysis [Recovering/Resolving]
  - Hypoxia [Recovered/Resolved]
  - Hiccups [Recovered/Resolved]
  - Constipation [Not Recovered/Not Resolved]

NARRATIVE: CASE EVENT DATE: 20210811
